FAERS Safety Report 12490263 (Version 2)
Quarter: 2016Q3

REPORT INFORMATION
  Report Type: Spontaneous
  Country: US (occurrence: US)
  Receive Date: 20160622
  Receipt Date: 20160922
  Transmission Date: 20161109
  Serious: No
  Sender: FDA-Public Use
  Company Number: GXBR2016US001864

PATIENT
  Age: 68 Year
  Sex: Female
  Weight: 72.56 kg

DRUGS (6)
  1. K-TAB [Concomitant]
     Active Substance: POTASSIUM CHLORIDE
     Indication: BLOOD PRESSURE ABNORMAL
     Dosage: 10 MEQ, QD
     Route: 048
  2. OMEPRAZOLE MAGNESIUM. [Concomitant]
     Active Substance: OMEPRAZOLE MAGNESIUM
     Indication: GASTROOESOPHAGEAL REFLUX DISEASE
     Dosage: 20.6 MG, QD
     Route: 048
  3. HCTZ [Concomitant]
     Active Substance: HYDROCHLOROTHIAZIDE
     Indication: BLOOD PRESSURE ABNORMAL
     Dosage: 25 MG, QD
     Route: 048
  4. GLATOPA [Suspect]
     Active Substance: GLATIRAMER ACETATE
     Indication: MULTIPLE SCLEROSIS RELAPSE
     Dosage: 20 MG, QD
     Route: 058
     Dates: start: 201507
  5. ALENDRONATE [Concomitant]
     Active Substance: ALENDRONATE SODIUM
     Indication: OSTEOPOROSIS
     Dosage: 7 MG, QW
     Route: 048
  6. ATENOLOL. [Concomitant]
     Active Substance: ATENOLOL
     Indication: BLOOD PRESSURE ABNORMAL
     Dosage: 50 MG, QD
     Route: 048

REACTIONS (1)
  - Onychoclasis [Recovered/Resolved]

NARRATIVE: CASE EVENT DATE: 20160510
